FAERS Safety Report 13644371 (Version 1)
Quarter: 2017Q2

REPORT INFORMATION
  Report Type: Spontaneous
  Country: US (occurrence: US)
  Receive Date: 20170612
  Receipt Date: 20170612
  Transmission Date: 20170830
  Serious: No
  Sender: FDA-Public Use
  Company Number: US-ROCHE-1304711

PATIENT
  Sex: Female
  Weight: 68.1 kg

DRUGS (3)
  1. XELODA [Suspect]
     Active Substance: CAPECITABINE
     Indication: BREAST CANCER
     Dosage: 3 TABS IN AM, 4 TABS IN PM, 7 DAYS ON 7 DAYS OFF
     Route: 048
  2. XELODA [Suspect]
     Active Substance: CAPECITABINE
     Dosage: AFTER SUPPER FOR 7DAYS
     Route: 048
     Dates: start: 20130917
  3. XELODA [Suspect]
     Active Substance: CAPECITABINE
     Dosage: AFTER BREAKFAST FOR 7DAYS.
     Route: 048
     Dates: start: 20130917

REACTIONS (3)
  - Stomatitis [Unknown]
  - Palmar-plantar erythrodysaesthesia syndrome [Unknown]
  - Abdominal pain upper [Not Recovered/Not Resolved]
